FAERS Safety Report 17153860 (Version 2)
Quarter: 2020Q3

REPORT INFORMATION
  Report Type: Spontaneous
  Country: US (occurrence: US)
  Receive Date: 20191213
  Receipt Date: 20200808
  Transmission Date: 20201102
  Serious: No
  Sender: FDA-Public Use
  Company Number: US-TEVA-2019-US-1151878

PATIENT
  Sex: Female

DRUGS (1)
  1. CLONAZEPAM TABLET TEVA [Suspect]
     Active Substance: CLONAZEPAM
     Route: 065

REACTIONS (4)
  - Anxiety [Not Recovered/Not Resolved]
  - Hypertension [Unknown]
  - Product substitution issue [Unknown]
  - Product availability issue [Unknown]
